APPROVED DRUG PRODUCT: MEPROBAMATE
Active Ingredient: MEPROBAMATE
Strength: 400MG
Dosage Form/Route: TABLET;ORAL
Application: A089538 | Product #001
Applicant: KM LEE LABORATORIES INC
Approved: Nov 25, 1987 | RLD: No | RS: No | Type: DISCN